FAERS Safety Report 4502392-1 (Version None)
Quarter: 2004Q4

REPORT INFORMATION
  Report Type: 
  Country: None (occurrence: None)
  Receive Date: 20041110
  Receipt Date: 20041025
  Transmission Date: 20050328
  Serious: Yes (Hospitalization)
  Sender: FDA-Public Use
  Company Number: T04-GER-07294-01

PATIENT
  Age: 48 Year
  Sex: Male

DRUGS (2)
  1. CITALOPRAM HYDROBROMIDE [Suspect]
     Dosage: 20 MG QD PO
     Route: 048
  2. ZYPREXA [Suspect]
     Dosage: 15 MG QD PO
     Route: 048

REACTIONS (5)
  - CHILLS [None]
  - DRUG INTERACTION [None]
  - MASKED FACIES [None]
  - POSTURE ABNORMAL [None]
  - TREMOR [None]
